FAERS Safety Report 10137112 (Version 1)
Quarter: 2014Q2

REPORT INFORMATION
  Report Type: Spontaneous
  Country: IR (occurrence: None)
  Receive Date: 20140425
  Receipt Date: 20140425
  Transmission Date: 20141212
  Serious: Yes (Hospitalization, Other)
  Sender: FDA-Public Use
  Company Number: IR-ALKEM-000564

PATIENT
  Age: 28 Year
  Sex: Female

DRUGS (1)
  1. METFORMIN [Suspect]
     Indication: OVULATION INDUCTION
     Dosage: 1.0 /  DAYS

REACTIONS (5)
  - Ovarian adenoma [None]
  - Haematocrit decreased [None]
  - Ectopic pregnancy [None]
  - Off label use [None]
  - Exposure during pregnancy [None]
